FAERS Safety Report 7948944-8 (Version None)
Quarter: 2011Q4

REPORT INFORMATION
  Report Type: 
  Country: None (occurrence: None)
  Receive Date: 20111130
  Receipt Date: 20111129
  Transmission Date: 20120403
  Serious: Yes (Death)
  Sender: FDA-Public Use
  Company Number: PHHY2011BD84702

PATIENT
  Sex: Female

DRUGS (1)
  1. DICLOFENAC SODIUM [Suspect]
     Indication: PROCEDURAL PAIN
     Dosage: 75 MG, ONCE AT THE TIME OF OPERATION IN THE EVENING
     Route: 042

REACTIONS (2)
  - URINE OUTPUT DECREASED [None]
  - RENAL FAILURE ACUTE [None]
